FAERS Safety Report 9242143 (Version 1)
Quarter: 2013Q2

REPORT INFORMATION
  Report Type: Spontaneous
  Country: CN (occurrence: CN)
  Receive Date: 20130419
  Receipt Date: 20130419
  Transmission Date: 20140414
  Serious: Yes (Other)
  Sender: FDA-Public Use
  Company Number: CN-JNJFOC-20130406051

PATIENT
  Sex: 0

DRUGS (1)
  1. RISPERDAL [Suspect]
     Indication: SCHIZOPHRENIA
     Dosage: 3-6 MG PER DAY
     Route: 048

REACTIONS (9)
  - Supraventricular extrasystoles [Unknown]
  - Electrocardiogram T wave abnormal [Unknown]
  - Ventricular extrasystoles [Unknown]
  - Electrocardiogram QT prolonged [Unknown]
  - Conduction disorder [Unknown]
  - Electrocardiogram abnormal [Unknown]
  - Sinus tachycardia [Unknown]
  - Sinus bradycardia [Unknown]
  - Sinus arrhythmia [Unknown]
